FAERS Safety Report 4446921-5 (Version None)
Quarter: 2004Q3

REPORT INFORMATION
  Report Type: 
  Country: None (occurrence: None)
  Receive Date: 20040908
  Receipt Date: 20040823
  Transmission Date: 20050211
  Serious: Yes (Hospitalization)
  Sender: FDA-Public Use
  Company Number: S04-FRA-03963-02

PATIENT
  Age: 7 Day
  Sex: Female

DRUGS (2)
  1. CITALOPRAM HYDROBROMIDE [Suspect]
     Dates: start: 20020615
  2. EUPHYTOSE [Suspect]
     Dates: start: 20020615

REACTIONS (6)
  - DRUG EXPOSURE DURING PREGNANCY [None]
  - FEVER NEONATAL [None]
  - HAEMORRHAGE INTRACRANIAL [None]
  - HYDROCEPHALUS [None]
  - NEONATAL DISORDER [None]
  - THROMBOCYTHAEMIA [None]
